FAERS Safety Report 8623221-0 (Version None)
Quarter: 2012Q3

REPORT INFORMATION
  Report Type: 
  Country: None (occurrence: None)
  Receive Date: 20120827
  Receipt Date: 20120814
  Transmission Date: 20120928
  Serious: Yes (Hospitalization)
  Sender: FDA-Public Use
  Company Number: DE-SANOFI-AVENTIS-2012SA058489

PATIENT
  Age: 53 Year
  Sex: Female
  Weight: 103 kg

DRUGS (7)
  1. METOCLOPRAMIDE [Concomitant]
     Indication: PROPHYLAXIS
     Route: 048
     Dates: start: 20110524, end: 20110527
  2. DOCETAXEL [Suspect]
     Indication: BREAST CANCER
     Route: 041
     Dates: start: 20110523, end: 20110523
  3. DEXAMETHASONE [Suspect]
     Indication: PROPHYLAXIS
     Route: 041
     Dates: start: 20110523, end: 20110523
  4. RANITIDINE [Concomitant]
     Indication: PROPHYLAXIS
     Route: 048
     Dates: start: 20110523, end: 20110523
  5. PANTOPRAZOLE [Concomitant]
     Indication: PROPHYLAXIS
     Route: 048
     Dates: start: 20110523, end: 20110527
  6. EMEND [Concomitant]
     Dosage: 125/80/80 MG
     Route: 048
     Dates: start: 20110523, end: 20110525
  7. DEXAMETHASONE [Suspect]
     Route: 048
     Dates: start: 20110522, end: 20110525

REACTIONS (1)
  - ANAL FISTULA [None]
